FAERS Safety Report 20875047 (Version 1)
Quarter: 2022Q2

REPORT INFORMATION
  Report Type: Spontaneous
  Country: DE (occurrence: DE)
  Receive Date: 20220526
  Receipt Date: 20220526
  Transmission Date: 20220721
  Serious: Yes (Hospitalization, Other)
  Sender: FDA-Public Use
  Company Number: DE-BRISTOL-MYERS SQUIBB COMPANY-2022-047608

PATIENT
  Age: 64 Year
  Sex: Male

DRUGS (45)
  1. OPDIVO [Suspect]
     Active Substance: NIVOLUMAB
     Indication: Product used for unknown indication
     Dosage: 3 MG/KG
     Route: 042
     Dates: start: 20180320, end: 20180403
  2. OPDIVO [Suspect]
     Active Substance: NIVOLUMAB
     Dosage: 3 MG/KG
     Route: 042
     Dates: start: 20180418, end: 20180502
  3. OPDIVO [Suspect]
     Active Substance: NIVOLUMAB
     Dosage: 3 MG/KG
     Route: 042
     Dates: start: 20180404, end: 20180417
  4. OPDIVO [Suspect]
     Active Substance: NIVOLUMAB
     Dosage: 3 MG/KG
     Route: 042
     Dates: start: 20171128, end: 20171211
  5. OPDIVO [Suspect]
     Active Substance: NIVOLUMAB
     Dosage: 3 MG/KG
     Route: 042
     Dates: start: 20180207, end: 20180220
  6. OPDIVO [Suspect]
     Active Substance: NIVOLUMAB
     Dosage: 3 MG/KG
     Route: 042
     Dates: start: 20180503, end: 20180515
  7. OPDIVO [Suspect]
     Active Substance: NIVOLUMAB
     Dosage: 3 MG/KG
     Route: 042
     Dates: start: 20171114, end: 20171127
  8. OPDIVO [Suspect]
     Active Substance: NIVOLUMAB
     Dosage: 3 MG/KG
     Route: 042
     Dates: start: 20180124, end: 20180206
  9. OPDIVO [Suspect]
     Active Substance: NIVOLUMAB
     Dosage: 3 MG/KG
     Route: 042
     Dates: start: 20180221, end: 20180306
  10. OPDIVO [Suspect]
     Active Substance: NIVOLUMAB
     Dosage: 3 MG/KG
     Route: 042
     Dates: start: 20171212, end: 20171226
  11. OPDIVO [Suspect]
     Active Substance: NIVOLUMAB
     Dosage: 3 MG/KG
     Route: 042
     Dates: start: 20180110, end: 20180123
  12. OPDIVO [Suspect]
     Active Substance: NIVOLUMAB
     Dosage: 3 MG/KG
     Route: 042
     Dates: start: 20180307, end: 20180319
  13. OPDIVO [Suspect]
     Active Substance: NIVOLUMAB
     Dosage: 3 MG/KG
     Route: 042
     Dates: start: 20171227, end: 20180109
  14. ZOMETA [Suspect]
     Active Substance: ZOLEDRONIC ACID
     Indication: Metastases to bone
     Dosage: 4 MG, QMO (1M)
     Route: 042
     Dates: start: 20131112, end: 20180507
  15. VOTRIENT [Suspect]
     Active Substance: PAZOPANIB HYDROCHLORIDE
     Indication: Metastatic renal cell carcinoma
     Dosage: 800 MG, QD
     Route: 048
     Dates: start: 20160715, end: 20160928
  16. VOTRIENT [Suspect]
     Active Substance: PAZOPANIB HYDROCHLORIDE
     Dosage: 800 MG, QD
     Route: 048
     Dates: start: 20161125, end: 20170125
  17. VOTRIENT [Suspect]
     Active Substance: PAZOPANIB HYDROCHLORIDE
     Dosage: 800 MG, QD
     Route: 048
     Dates: start: 20170405, end: 20170712
  18. VOTRIENT [Suspect]
     Active Substance: PAZOPANIB HYDROCHLORIDE
     Dosage: 800 MG, QD
     Route: 048
     Dates: start: 20160929, end: 20161124
  19. VOTRIENT [Suspect]
     Active Substance: PAZOPANIB HYDROCHLORIDE
     Dosage: 800 MG, QD
     Route: 048
     Dates: start: 20170126, end: 20170404
  20. VOTRIENT [Suspect]
     Active Substance: PAZOPANIB HYDROCHLORIDE
     Dosage: 800 MG, QD
     Route: 048
     Dates: start: 20170713, end: 20171005
  21. VOTRIENT [Suspect]
     Active Substance: PAZOPANIB HYDROCHLORIDE
     Dosage: 800 MG
     Route: 048
     Dates: start: 20171006, end: 20171107
  22. AFINITOR [Suspect]
     Active Substance: EVEROLIMUS
     Indication: Metastatic renal cell carcinoma
     Dosage: 5 MG, QD
     Route: 048
     Dates: start: 20190416, end: 20190416
  23. AFINITOR [Suspect]
     Active Substance: EVEROLIMUS
     Dosage: UNK
     Route: 065
     Dates: start: 20190507, end: 20190616
  24. AFINITOR [Suspect]
     Active Substance: EVEROLIMUS
     Dosage: 5 MG, QD
     Route: 048
     Dates: start: 20190710, end: 20191001
  25. AFINITOR [Suspect]
     Active Substance: EVEROLIMUS
     Dosage: 10 MG, QD
     Route: 048
     Dates: start: 20180516, end: 20180807
  26. AFINITOR [Suspect]
     Active Substance: EVEROLIMUS
     Dosage: 5 MG, QD
     Route: 048
     Dates: start: 20190417, end: 20191003
  27. AFINITOR [Suspect]
     Active Substance: EVEROLIMUS
     Dosage: 5 MG, QD
     Route: 048
     Dates: start: 20190416, end: 20190416
  28. AFINITOR [Suspect]
     Active Substance: EVEROLIMUS
     Dosage: 10 MG, QD
     Route: 048
     Dates: start: 20181031, end: 20190122
  29. AFINITOR [Suspect]
     Active Substance: EVEROLIMUS
     Dosage: UNKNOWN
     Route: 065
     Dates: start: 20191004, end: 20191004
  30. AFINITOR [Suspect]
     Active Substance: EVEROLIMUS
     Dosage: 5 MG, QD
     Route: 048
     Dates: start: 20190507, end: 20190616
  31. AFINITOR [Suspect]
     Active Substance: EVEROLIMUS
     Dosage: 10 MG, QD
     Route: 048
     Dates: start: 20190123, end: 20190415
  32. AFINITOR [Suspect]
     Active Substance: EVEROLIMUS
     Dosage: 10 MG, QD
     Route: 048
     Dates: start: 20180808, end: 20181030
  33. LENVATINIB [Suspect]
     Active Substance: LENVATINIB
     Indication: Renal cell carcinoma
     Dosage: 10 MG, QD
     Route: 048
     Dates: start: 20190213
  34. LYRICA [Concomitant]
     Active Substance: PREGABALIN
     Indication: Metastases to bone
     Dosage: 100 MG, BID
     Route: 065
     Dates: start: 20150803
  35. DIMETHINDENE [Concomitant]
     Active Substance: DIMETHINDENE
     Indication: Prophylaxis
     Dosage: 1 MG, PRN
     Route: 065
  36. DIMETHINDENE [Concomitant]
     Active Substance: DIMETHINDENE
     Dosage: 1 MG, PRN
     Route: 065
  37. DIMETHINDENE [Concomitant]
     Active Substance: DIMETHINDENE
     Dosage: 1 MG, PRN
     Route: 065
  38. ZOPICLONE [Concomitant]
     Active Substance: ZOPICLONE
     Indication: Sleep disorder
     Dosage: 7.5 MG, PRN
     Route: 048
  39. PANTOPRAZOL BETA [Concomitant]
     Indication: Prophylaxis
     Dosage: 40 MG, BID
     Route: 048
     Dates: start: 201601
  40. METOPROLOL SUCCINATE [Concomitant]
     Active Substance: METOPROLOL SUCCINATE
     Indication: Arrhythmia
     Dosage: 47.5 MG, BID
     Route: 048
  41. METOPROLOL SUCCINATE [Concomitant]
     Active Substance: METOPROLOL SUCCINATE
     Dosage: 47.5 MG, BID
     Route: 048
  42. METOPROLOL SUCCINATE [Concomitant]
     Active Substance: METOPROLOL SUCCINATE
     Dosage: 47.5 MG, BID
     Route: 048
  43. ALLOPURINOL [Concomitant]
     Active Substance: ALLOPURINOL
     Indication: Chronic kidney disease
     Dosage: 300 MG, QD
     Route: 048
  44. ALLOPURINOL [Concomitant]
     Active Substance: ALLOPURINOL
     Dosage: 300 MG, QD
     Route: 048
  45. ALLOPURINOL [Concomitant]
     Active Substance: ALLOPURINOL
     Dosage: 300 MG, QD
     Route: 048

REACTIONS (23)
  - Hypothyroidism [Unknown]
  - Blood creatinine increased [Unknown]
  - Diarrhoea [Unknown]
  - Nausea [Unknown]
  - Constipation [Unknown]
  - Skin swelling [Unknown]
  - Impaired healing [Unknown]
  - Osteonecrosis of jaw [Unknown]
  - Vomiting [Unknown]
  - Abdominal distension [Unknown]
  - Oral herpes [Unknown]
  - Skin oedema [Unknown]
  - Soft tissue infection [Unknown]
  - Decreased appetite [Unknown]
  - Hypertension [Unknown]
  - Blood urea increased [Unknown]
  - Metastases to liver [Unknown]
  - Rash [Unknown]
  - Leukopenia [Unknown]
  - Acute sinusitis [Unknown]
  - Bone disorder [Unknown]
  - Palmar-plantar erythrodysaesthesia syndrome [Unknown]
  - Gout [Unknown]
